FAERS Safety Report 6609155-1 (Version None)
Quarter: 2010Q1

REPORT INFORMATION
  Report Type: 
  Country: None (occurrence: None)
  Receive Date: 20100301
  Receipt Date: 20100218
  Transmission Date: 20100710
  Serious: Yes (Other)
  Sender: FDA-Public Use
  Company Number: JP-ABBOTT-10P-087-0622003-00

PATIENT
  Sex: Female
  Weight: 53 kg

DRUGS (19)
  1. SEVOFLURANE [Suspect]
     Indication: GENERAL ANAESTHESIA
     Route: 055
     Dates: start: 20100122, end: 20100122
  2. SEVOFLURANE [Suspect]
     Route: 055
     Dates: start: 20100122, end: 20100122
  3. SEVOFLURANE [Suspect]
     Route: 055
     Dates: start: 20100122, end: 20100122
  4. SEVOFLURANE [Suspect]
     Route: 055
     Dates: start: 20100122, end: 20100122
  5. SEVOFLURANE [Suspect]
     Route: 055
     Dates: start: 20100122, end: 20100122
  6. NITROUS OXIDE [Concomitant]
     Indication: GENERAL ANAESTHESIA
     Dosage: 50% 3L/MIN @ 14:53
     Dates: start: 20100122, end: 20100122
  7. ISOZOL [Concomitant]
     Indication: GENERAL ANAESTHESIA
     Dosage: @ 14:53
     Route: 042
     Dates: start: 20100122, end: 20100122
  8. SUCCINYLCHOLINE CHLORIDE [Concomitant]
     Indication: GENERAL ANAESTHESIA
     Dosage: @ 14:53
     Route: 042
     Dates: start: 20100122, end: 20100122
  9. MUSCULAX [Concomitant]
     Indication: GENERAL ANAESTHESIA
     Dosage: @ 14:53
     Route: 042
     Dates: start: 20100122, end: 20100122
  10. MUSCULAX [Concomitant]
     Dosage: @ UNKNOWN TIME
     Route: 042
     Dates: start: 20100122, end: 20100122
  11. FENTANYL-100 [Concomitant]
     Indication: GENERAL ANAESTHESIA
     Dosage: @ 14:53
     Route: 042
     Dates: start: 20100122, end: 20100122
  12. FENTANYL-100 [Concomitant]
     Dosage: @ 15:17
     Route: 042
     Dates: start: 20100122, end: 20100122
  13. FENTANYL-100 [Concomitant]
     Dosage: @ 16:15
     Route: 042
     Dates: start: 20100122, end: 20100122
  14. OXYGEN [Concomitant]
     Indication: DRUG USE FOR UNKNOWN INDICATION
     Dosage: @ 14:53
     Dates: start: 20100122, end: 20100122
  15. DIPRIVAN [Concomitant]
     Indication: DRUG USE FOR UNKNOWN INDICATION
     Dosage: @ 16:02
     Dates: start: 20100122, end: 20100122
  16. DIPRIVAN [Concomitant]
     Dosage: @ 16:02
     Dates: start: 20100122, end: 20100122
  17. DIPRIVAN [Concomitant]
     Dosage: @ 16:02
     Dates: start: 20100122, end: 20100122
  18. DIPRIVAN [Concomitant]
     Dosage: @ 16:15
     Dates: start: 20100122, end: 20100122
  19. NEOSTIGMINE METHYLSULFATE/ATROPINE SULFATE HYDRATE [Concomitant]
     Indication: DRUG USE FOR UNKNOWN INDICATION
     Dosage: @ 18:26
     Route: 042
     Dates: start: 20100122, end: 20100122

REACTIONS (3)
  - BLOOD PRESSURE DECREASED [None]
  - DRUG INEFFECTIVE [None]
  - TACHYCARDIA [None]
